FAERS Safety Report 9878430 (Version 1)
Quarter: 2014Q1

REPORT INFORMATION
  Report Type: Spontaneous
  Country: US (occurrence: US)
  Receive Date: 20140206
  Receipt Date: 20140206
  Transmission Date: 20141002
  Serious: Yes (Death)
  Sender: FDA-Public Use
  Company Number: US-BAYER-2014-016685

PATIENT
  Age: 97 Year
  Sex: Female

DRUGS (3)
  1. BAYER GENUINE ASPIRIN ORIGINAL STRENGTH [Suspect]
     Indication: CEREBROVASCULAR ACCIDENT PROPHYLAXIS
     Dosage: UNK
     Route: 048
     Dates: end: 2008
  2. BAYER GENUINE ASPIRIN ORIGINAL STRENGTH [Suspect]
     Indication: PAIN
  3. RISPERDAL [Concomitant]

REACTIONS (2)
  - Cardiac failure [Fatal]
  - Intentional drug misuse [None]
